FAERS Safety Report 8539570-0 (Version None)
Quarter: 2012Q3

REPORT INFORMATION
  Report Type: 
  Country: None (occurrence: None)
  Receive Date: 20120726
  Receipt Date: 20120712
  Transmission Date: 20120928
  Serious: Yes (Hospitalization, Other)
  Sender: FDA-Public Use
  Company Number: CA-ELI_LILLY_AND_COMPANY-CA201207004262

PATIENT

DRUGS (1)
  1. ZYPREXA [Suspect]
     Dosage: UNK
     Dates: start: 20020101

REACTIONS (4)
  - RHABDOMYOLYSIS [None]
  - BLOOD CHOLESTEROL ABNORMAL [None]
  - ADVERSE DRUG REACTION [None]
  - BLOOD GLUCOSE ABNORMAL [None]
